FAERS Safety Report 9031314 (Version 1)
Quarter: 2013Q1

REPORT INFORMATION
  Report Type: Spontaneous
  Country: BR (occurrence: BR)
  Receive Date: 20130124
  Receipt Date: 20130124
  Transmission Date: 20140127
  Serious: Yes (Hospitalization)
  Sender: FDA-Public Use
  Company Number: BR-PFIZER INC-2013023953

PATIENT
  Age: 59 Year
  Sex: Female

DRUGS (1)
  1. CELEBRA [Suspect]
     Indication: SPINAL PAIN
     Dosage: 200 MG, ONE TABLET DAILY
     Dates: start: 20110816, end: 20130114

REACTIONS (1)
  - Intervertebral disc protrusion [Unknown]
